FAERS Safety Report 7984896-2 (Version None)
Quarter: 2011Q4

REPORT INFORMATION
  Report Type: 
  Country: None (occurrence: None)
  Receive Date: 20111216
  Receipt Date: 20111010
  Transmission Date: 20120403
  Serious: No
  Sender: FDA-Public Use
  Company Number: US-ALLERGAN-1113352US

PATIENT
  Age: 55 Year
  Sex: Female

DRUGS (2)
  1. LATISSE [Suspect]
     Indication: GROWTH OF EYELASHES
     Dosage: 1 GTT, QHS
     Route: 061
     Dates: start: 20110101, end: 20110901
  2. VISINE                             /00256502/ [Concomitant]
     Dosage: UNK
     Route: 047

REACTIONS (4)
  - SCLERAL HYPERAEMIA [None]
  - TRICHORRHEXIS [None]
  - EYELIDS PRURITUS [None]
  - INAPPROPRIATE SCHEDULE OF DRUG ADMINISTRATION [None]
